FAERS Safety Report 12712470 (Version 1)
Quarter: 2016Q3

REPORT INFORMATION
  Report Type: Report from Study
  Country: US (occurrence: US)
  Receive Date: 20160902
  Receipt Date: 20160902
  Transmission Date: 20161109
  Serious: Yes (Hospitalization, Other)
  Sender: FDA-Public Use
  Company Number: US-AMGEN-USASL2016112640

PATIENT
  Age: 66 Year
  Sex: Male

DRUGS (1)
  1. ENBREL [Suspect]
     Active Substance: ETANERCEPT
     Indication: PRODUCT USED FOR UNKNOWN INDICATION
     Dosage: UNK
     Route: 065
     Dates: start: 2016

REACTIONS (8)
  - Lung infection [Unknown]
  - Weight decreased [Unknown]
  - Mobility decreased [Unknown]
  - Asthenia [Unknown]
  - Rheumatoid arthritis [Unknown]
  - Cough [Unknown]
  - Mycobacterium avium complex infection [Unknown]
  - Lethargy [Unknown]

NARRATIVE: CASE EVENT DATE: 2016
